FAERS Safety Report 4617852-2 (Version None)
Quarter: 2005Q1

REPORT INFORMATION
  Report Type: 
  Country: None (occurrence: None)
  Receive Date: 20050324
  Receipt Date: 20050128
  Transmission Date: 20050727
  Serious: Yes (Other)
  Sender: FDA-Public Use
  Company Number: AU-GLAXOSMITHKLINE-B0370073A

PATIENT
  Age: 56 Year
  Sex: Male

DRUGS (2)
  1. ZYBAN [Suspect]
     Route: 048
  2. LIPITOR [Concomitant]

REACTIONS (4)
  - EUPHORIC MOOD [None]
  - FEELING ABNORMAL [None]
  - HYPOMANIA [None]
  - PARANOIA [None]
